FAERS Safety Report 7303325-5 (Version None)
Quarter: 2011Q1

REPORT INFORMATION
  Report Type: 
  Country: None (occurrence: None)
  Receive Date: 20110221
  Receipt Date: 20110214
  Transmission Date: 20110831
  Serious: Yes (Other)
  Sender: FDA-Public Use
  Company Number: CA-BRISTOL-MYERS SQUIBB COMPANY-15536238

PATIENT
  Age: 64 Year
  Sex: Male

DRUGS (4)
  1. ACETYLSALICYLIC ACID [Concomitant]
  2. AVAPRO [Concomitant]
  3. METFORMIN [Concomitant]
  4. ONGLYZA [Suspect]
     Indication: DIABETES MELLITUS
     Route: 048
     Dates: start: 20101209

REACTIONS (3)
  - HYPERTENSION [None]
  - HYPERGLYCAEMIA [None]
  - HEADACHE [None]
